FAERS Safety Report 21641116 (Version 1)
Quarter: 2022Q4

REPORT INFORMATION
  Report Type: Spontaneous
  Country: PL (occurrence: PL)
  Receive Date: 20221125
  Receipt Date: 20221125
  Transmission Date: 20230112
  Serious: Yes (Other)
  Sender: FDA-Public Use
  Company Number: PL-TOLMAR, INC.-22PL037447

PATIENT
  Age: 68 Year
  Sex: Male

DRUGS (3)
  1. ELIGARD [Suspect]
     Active Substance: LEUPROLIDE ACETATE
     Indication: Prostate cancer metastatic
     Dosage: UNK
  2. DOCETAXEL [Suspect]
     Active Substance: DOCETAXEL
     Indication: Prostate cancer metastatic
     Dosage: 6 CYCLES
  3. RADIATION THERAPY [Suspect]
     Active Substance: RADIATION THERAPY
     Indication: Cancer pain
     Dosage: UNK

REACTIONS (6)
  - Cancer pain [Unknown]
  - Metastases to lymph nodes [Not Recovered/Not Resolved]
  - Metastases to bone [Not Recovered/Not Resolved]
  - Prostatic specific antigen increased [Unknown]
  - Peripheral sensory neuropathy [Unknown]
  - Asthenia [Unknown]
